FAERS Safety Report 4562476-9 (Version None)
Quarter: 2005Q1

REPORT INFORMATION
  Report Type: 
  Country: None (occurrence: None)
  Receive Date: 20050121
  Receipt Date: 20050103
  Transmission Date: 20050727
  Serious: Yes (Hospitalization)
  Sender: FDA-Public Use
  Company Number: US_0501109757

PATIENT
  Age: 62 Year
  Sex: Female
  Weight: 86 kg

DRUGS (19)
  1. DULOXETINE HYDROCHLORIDE [Suspect]
     Indication: STRESS INCONTINENCE
     Dosage: 40 MG/2 DAY
     Dates: start: 20040308
  2. ZOCOR (SIMVASTATIN RATIOPHARM) [Concomitant]
  3. AMILORID/HCTZ [Concomitant]
  4. FOSAMAX [Concomitant]
  5. MULTI-VITAMIN [Concomitant]
  6. B-50 [Concomitant]
  7. VITAMIN E (HERBAL OIL NOS) [Concomitant]
  8. CALCIUM D [Concomitant]
  9. VITAMIN C [Concomitant]
  10. BILBERRY [Concomitant]
  11. GRAPE SEED EXTRACT [Concomitant]
  12. COENZYME Q10 [Concomitant]
  13. FLAXSEED OIL [Concomitant]
  14. BEE POLLEN [Concomitant]
  15. REPLENEX (GLUCOSAMINE) [Concomitant]
  16. ECHINACEA EXTRACT [Concomitant]
  17. CRANBERRY [Concomitant]
  18. REGLAN [Concomitant]
  19. PREVACID [Concomitant]

REACTIONS (1)
  - CHOLECYSTITIS [None]
